FAERS Safety Report 15237041 (Version 1)
Quarter: 2018Q3

REPORT INFORMATION
  Report Type: Spontaneous
  Country: US (occurrence: US)
  Receive Date: 20180803
  Receipt Date: 20180803
  Transmission Date: 20181010
  Serious: No
  Sender: FDA-Public Use
  Company Number: US-SA-2018SA209301

PATIENT
  Age: 54 Year
  Sex: Male

DRUGS (7)
  1. CLOPIDOGREL [Concomitant]
     Active Substance: CLOPIDOGREL BISULFATE
  2. FISH OIL [Concomitant]
     Active Substance: FISH OIL
  3. LIVALO [Concomitant]
     Active Substance: PITAVASTATIN CALCIUM
  4. ASPIRINE [Concomitant]
     Active Substance: ASPIRIN
  5. ALIROCUMAB PREFILLED PEN [Suspect]
     Active Substance: ALIROCUMAB
     Indication: ARTERIOSCLEROSIS
     Dosage: UNK UNK, QOW
     Route: 058
     Dates: start: 20170415
  6. PRALUENT [Suspect]
     Active Substance: ALIROCUMAB
     Indication: ARTERIOSCLEROSIS
     Dosage: 75 MG/ML, QOW
     Route: 058
     Dates: start: 20170415
  7. EZETIMIBE. [Concomitant]
     Active Substance: EZETIMIBE

REACTIONS (3)
  - Pruritus [Unknown]
  - Drug dose omission [Unknown]
  - Rash [Unknown]
